FAERS Safety Report 6170797-1 (Version None)
Quarter: 2009Q2

REPORT INFORMATION
  Report Type: 
  Country: None (occurrence: None)
  Receive Date: 20090427
  Receipt Date: 20090416
  Transmission Date: 20091009
  Serious: Yes (Other)
  Sender: FDA-Public Use
  Company Number: CHPA2009US09887

PATIENT
  Sex: Female

DRUGS (2)
  1. VAGISTAT-1 [Suspect]
     Indication: VULVOVAGINAL MYCOTIC INFECTION
     Dosage: 300 MG, ONCE/SINGLE, VAGINAL
     Route: 067
     Dates: start: 20090401, end: 20090401
  2. DRUG THERAPY NOW (DRUG THERAPY NOS) [Concomitant]

REACTIONS (1)
  - VAGINAL HAEMORRHAGE [None]
